FAERS Safety Report 8399329 (Version 2)
Quarter: 2014Q2

REPORT INFORMATION
  Report Type: Spontaneous
  Country: US (occurrence: US)
  Receive Date: 20120210
  Receipt Date: 20140430
  Transmission Date: 20141212
  Serious: Yes (Other)
  Sender: FDA-Public Use
  Company Number: US-RANBAXY-2012US-52377

PATIENT
  Age: 44 Year
  Sex: Female

DRUGS (5)
  1. NEFAZODONE [Suspect]
     Indication: PRODUCT USED FOR UNKNOWN INDICATION
     Dosage: 300 MG, BID
     Route: 065
  2. SIROLIMUS [Interacting]
     Indication: PRODUCT USED FOR UNKNOWN INDICATION
     Dosage: UNK
     Route: 065
     Dates: start: 200301
  3. SIROLIMUS [Interacting]
     Dosage: 1 MG, QOD
     Route: 065
     Dates: start: 200309
  4. SIROLIMUS [Interacting]
     Dosage: 1 MG, DAILY
     Route: 065
  5. SIROLIMUS [Interacting]
     Dosage: 2 MG, DAILY
     Route: 065

REACTIONS (2)
  - Drug interaction [Recovered/Resolved]
  - Drug level decreased [Recovered/Resolved]
